FAERS Safety Report 5477780-X (Version None)
Quarter: 2007Q4

REPORT INFORMATION
  Report Type: 
  Country: None (occurrence: None)
  Receive Date: 20071002
  Receipt Date: 20070928
  Transmission Date: 20080405
  Serious: Yes (Hospitalization, Other)
  Sender: FDA-Public Use
  Company Number: VISP-NO-0709S-0427

PATIENT
  Age: 68 Year
  Sex: Male

DRUGS (11)
  1. VISIPAQUE [Suspect]
     Indication: PROSTATE CANCER
     Dosage: 50 MG, SINGLE DOSE, I.V.
     Route: 042
     Dates: start: 20070918, end: 20070918
  2. VISIPAQUE [Suspect]
     Indication: PROSTATE CANCER
  3. VISIPAQUE [Suspect]
     Indication: PROSTATE CANCER
  4. VISIPAQUE [Suspect]
     Indication: PROSTATE CANCER
  5. VISIPAQUE [Suspect]
     Indication: PROSTATE CANCER
  6. VISIPAQUE [Suspect]
     Indication: PROSTATE CANCER
  7. SERENOA REPENS [Concomitant]
  8. IBUPROFEN [Concomitant]
  9. HESPERIDINE [Concomitant]
  10. FLUOCINOLONE ACETONIDE [Concomitant]
  11. MEGLUMINE AMIDOTRIZOATE AND SODIUM AMIDOTRIZOATE (GASTROGRAFIN) [Concomitant]

REACTIONS (6)
  - CHILLS [None]
  - HEPATORENAL SYNDROME [None]
  - MALAISE [None]
  - MYALGIA [None]
  - PYREXIA [None]
  - VOMITING [None]
